FAERS Safety Report 11170286 (Version 2)
Quarter: 2015Q3

REPORT INFORMATION
  Report Type: Report from Study
  Country: BR (occurrence: BR)
  Receive Date: 20150608
  Receipt Date: 20150724
  Transmission Date: 20151125
  Serious: Yes (Hospitalization, Other)
  Sender: FDA-Public Use
  Company Number: PHHY2015BR065584

PATIENT
  Sex: Female
  Weight: 16 kg

DRUGS (3)
  1. CEPHALEXIN. [Concomitant]
     Active Substance: CEPHALEXIN
     Indication: INFECTION
     Dosage: 6 ML, QD
     Route: 065
     Dates: start: 2013
  2. ILARIS [Suspect]
     Active Substance: CANAKINUMAB
     Indication: AUTOINFLAMMATORY DISEASE
     Dosage: 150 MG, EVERY 2 MONTHS
     Route: 065
     Dates: start: 201410, end: 201410
  3. COLD CREAM [Concomitant]
     Active Substance: COLD CREAM
     Indication: DRY SKIN
     Dosage: UNK
     Route: 065
     Dates: start: 201109

REACTIONS (4)
  - Lung infection [Unknown]
  - Arthritis bacterial [Unknown]
  - Autoinflammatory disease [Unknown]
  - Cough [Unknown]
